FAERS Safety Report 10170936 (Version 1)
Quarter: 2014Q2

REPORT INFORMATION
  Report Type: Spontaneous
  Country: US (occurrence: None)
  Receive Date: 20140513
  Receipt Date: 20140513
  Transmission Date: 20141212
  Serious: Yes (Hospitalization)
  Sender: FDA-Public Use
  Company Number: None

PATIENT
  Age: 50 Year
  Sex: Female

DRUGS (9)
  1. WARFARIN [Suspect]
     Indication: DEEP VEIN THROMBOSIS
     Dosage: M-TH
     Route: 048
     Dates: start: 20130101, end: 20130201
  2. ALPRAZOLAM [Concomitant]
  3. DULOXETINE [Concomitant]
  4. FAMOTIDINE [Concomitant]
  5. FOLIC ACID [Concomitant]
  6. ADALIMUMAB [Concomitant]
  7. MERCAPTOPURINE [Concomitant]
  8. METOPROLOL SUCCINATE [Concomitant]
  9. OXYCODONE [Concomitant]

REACTIONS (3)
  - Vaginal haemorrhage [None]
  - Rectal haemorrhage [None]
  - International normalised ratio increased [None]
